FAERS Safety Report 9828052 (Version 2)
Quarter: 2014Q1

REPORT INFORMATION
  Report Type: Spontaneous
  Country: US (occurrence: US)
  Receive Date: 20140117
  Receipt Date: 20140117
  Transmission Date: 20141002
  Serious: No
  Sender: FDA-Public Use
  Company Number: US-GILEAD-2010-0030788

PATIENT
  Sex: Male

DRUGS (15)
  1. ATRIPLA [Suspect]
     Indication: HIV INFECTION
     Dates: start: 2010
  2. TRUVADA [Concomitant]
     Indication: HIV INFECTION
     Dates: start: 200604, end: 2010
  3. SUSTIVA [Concomitant]
     Indication: HIV INFECTION
     Dates: start: 200604, end: 2010
  4. PROTONIX [Concomitant]
  5. METOPROLOL [Concomitant]
  6. DIOVAN [Concomitant]
  7. ZETIA [Concomitant]
  8. AMITRIPTYLINE [Concomitant]
  9. ADVAIR [Concomitant]
  10. NASONEX [Concomitant]
  11. NASACORT [Concomitant]
  12. KETOCONAZOLE [Concomitant]
  13. TRIAMCINOLONE ACETONIDE [Concomitant]
  14. MUPIROCIN [Concomitant]
  15. WELCHOL [Concomitant]

REACTIONS (1)
  - Drug ineffective [Recovered/Resolved]
